FAERS Safety Report 6208565-4 (Version None)
Quarter: 2009Q2

REPORT INFORMATION
  Report Type: 
  Country: None (occurrence: None)
  Receive Date: 20090529
  Receipt Date: 20090519
  Transmission Date: 20091009
  Serious: Yes (Life-Threatening, Hospitalization, Other)
  Sender: FDA-Public Use
  Company Number: FR-PFIZER INC-2009215599

PATIENT
  Age: 44 Year

DRUGS (10)
  1. ANIDULAFUNGIN [Suspect]
     Indication: SYSTEMIC CANDIDA
     Dosage: 100 MG, 1X/DAY
     Route: 042
     Dates: start: 20090421, end: 20090518
  2. INIPOMP [Concomitant]
     Dosage: UNK
     Route: 042
     Dates: start: 20090329
  3. VENTOLIN [Concomitant]
     Dosage: UNK
     Route: 048
     Dates: start: 20090329
  4. DUPHALAC [Concomitant]
     Dosage: UNK
     Route: 054
     Dates: start: 20090423, end: 20090503
  5. COLIMYCINE [Concomitant]
     Dosage: UNK
     Route: 048
     Dates: start: 20090423, end: 20090506
  6. AZACTAM [Concomitant]
     Dosage: UNK
     Route: 042
     Dates: start: 20090416, end: 20090503
  7. BUMEX [Concomitant]
     Dosage: UNK
     Route: 042
     Dates: start: 20090506
  8. MUCOMYST [Concomitant]
     Dosage: UNK
     Route: 048
     Dates: start: 20090509
  9. SUFENTA PRESERVATIVE FREE [Concomitant]
     Dosage: UNK
     Route: 042
     Dates: start: 20090515
  10. HYPNOVEL [Concomitant]
     Dosage: UNK
     Route: 042
     Dates: start: 20090515

REACTIONS (1)
  - SEPTIC SHOCK [None]
